FAERS Safety Report 7114538-X (Version None)
Quarter: 2010Q4

REPORT INFORMATION
  Report Type: 
  Country: None (occurrence: None)
  Receive Date: 20101119
  Receipt Date: 20101105
  Transmission Date: 20110411
  Serious: Yes (Other)
  Sender: FDA-Public Use
  Company Number: US-ABBOTT-10P-163-0683983-00

PATIENT
  Sex: Female

DRUGS (2)
  1. LUPRON DEPOT [Suspect]
     Indication: PRODUCT USED FOR UNKNOWN INDICATION
  2. PROGESTERONE [Concomitant]
     Indication: CERVICAL INCOMPETENCE

REACTIONS (2)
  - CERVIX CERCLAGE PROCEDURE [None]
  - VAGINITIS BACTERIAL [None]
